FAERS Safety Report 7921221-7 (Version None)
Quarter: 2011Q4

REPORT INFORMATION
  Report Type: 
  Country: None (occurrence: None)
  Receive Date: 20111117
  Receipt Date: 20111110
  Transmission Date: 20120403
  Serious: No
  Sender: FDA-Public Use
  Company Number: US-PFIZER INC-2011276804

PATIENT
  Sex: Female

DRUGS (1)
  1. REVATIO [Suspect]
     Dosage: UNK

REACTIONS (1)
  - HEADACHE [None]
